FAERS Safety Report 8518592-X (Version None)
Quarter: 2012Q3

REPORT INFORMATION
  Report Type: 
  Country: None (occurrence: None)
  Receive Date: 20120718
  Receipt Date: 20120130
  Transmission Date: 20120928
  Serious: No
  Sender: FDA-Public Use
  Company Number: US-BRISTOL-MYERS SQUIBB COMPANY-14614903

PATIENT
  Age: 66 Year
  Sex: Female
  Weight: 58 kg

DRUGS (3)
  1. COUMADIN [Suspect]
     Indication: ATRIAL FIBRILLATION
     Dosage: 1 DF:2 MG FOR 6DAYS/WEEK AND 3 MG FOR 1DAY/WEEK PRESCRIPTION#113311003774
     Route: 048
     Dates: start: 20030901
  2. MULTI-VITAMIN [Concomitant]
  3. ATENOLOL [Concomitant]

REACTIONS (3)
  - TENDONITIS [None]
  - HEPATIC ENZYME INCREASED [None]
  - BLADDER DISORDER [None]
